FAERS Safety Report 10670567 (Version 2)
Quarter: 2014Q4

REPORT INFORMATION
  Report Type: Spontaneous
  Country: MX (occurrence: None)
  Receive Date: 20141219
  Receipt Date: 20141219
  Transmission Date: 20150529
  Serious: Yes (Hospitalization)
  Sender: FDA-Public Use
  Company Number: A1081739A

PATIENT
  Age: 69 Year
  Sex: Female

DRUGS (1)
  1. PAROXETINE HYDROCHLORIDE. [Suspect]
     Active Substance: PAROXETINE HYDROCHLORIDE
     Indication: ANXIETY
     Dates: start: 20140707

REACTIONS (11)
  - Sepsis [None]
  - Infection [None]
  - Abasia [None]
  - Gallbladder operation [None]
  - Somnolence [None]
  - Chondropathy [None]
  - Hallucination [None]
  - Asthenia [None]
  - Adverse event [None]
  - Mental disorder [None]
  - Depressed level of consciousness [None]

NARRATIVE: CASE EVENT DATE: 20140710
